FAERS Safety Report 5796416-1 (Version None)
Quarter: 2008Q3

REPORT INFORMATION
  Report Type: 
  Country: None (occurrence: None)
  Receive Date: 20080701
  Receipt Date: 20080623
  Transmission Date: 20090109
  Serious: Yes (Hospitalization, Other)
  Sender: FDA-Public Use
  Company Number: DE-JNJFOC-20080602398

PATIENT
  Age: 51 Year
  Sex: Female
  Weight: 76 kg

DRUGS (2)
  1. REMICADE [Suspect]
     Indication: CROHN'S DISEASE
     Route: 042
  2. AZATHIOPRINE [Concomitant]
     Dosage: USE FOR MORE THAN 10 YEARS

REACTIONS (1)
  - B-CELL LYMPHOMA [None]
